FAERS Safety Report 5583154-3 (Version None)
Quarter: 2008Q1

REPORT INFORMATION
  Report Type: 
  Country: None (occurrence: None)
  Receive Date: 20080103
  Receipt Date: 20080103
  Transmission Date: 20080703
  Serious: Yes (Hospitalization)
  Sender: FDA-Public Use
  Company Number: None

PATIENT
  Age: 57 Year
  Sex: Female

DRUGS (2)
  1. NAPROXEN [Suspect]
     Indication: PAIN IN EXTREMITY
     Dosage: BID PO
     Route: 048
  2. ASPIRIN [Suspect]
     Indication: ANTICOAGULANT THERAPY
     Dosage: 81MG  DAILY  PO
     Route: 048

REACTIONS (1)
  - GASTRIC ULCER [None]
